FAERS Safety Report 6157107-0 (Version None)
Quarter: 2009Q2

REPORT INFORMATION
  Report Type: 
  Country: None (occurrence: None)
  Receive Date: 20090413
  Receipt Date: 20090331
  Transmission Date: 20091009
  Serious: Yes (Life-Threatening, Hospitalization)
  Sender: FDA-Public Use
  Company Number: 235858

PATIENT
  Age: 55 Year
  Sex: Male

DRUGS (6)
  1. IRINOTECAN HCL [Suspect]
     Indication: RECTAL CANCER
     Dosage: 315 MG, ONCE EVERY 2 WEEKS, INTRAVENOUS; 315 MG (ONCE EVERY 2 WEEKS) INTRAVENOUS
     Route: 042
     Dates: start: 20090112, end: 20090224
  2. IRINOTECAN HCL [Suspect]
     Indication: RECTAL CANCER
     Dosage: 315 MG, ONCE EVERY 2 WEEKS, INTRAVENOUS; 315 MG (ONCE EVERY 2 WEEKS) INTRAVENOUS
     Route: 042
     Dates: start: 20090112, end: 20090224
  3. FLUOROURACIL [Suspect]
     Indication: RECTAL CANCER
     Dosage: 1700 MG, ONCE EVERY 2 WEEKS, INTRAVEOUS; 1700 MG (ONCE EVERY 2 WEEKS) INTRAVENOUS
     Route: 042
     Dates: start: 20090112, end: 20090224
  4. FLUOROURACIL [Suspect]
     Indication: RECTAL CANCER
     Dosage: 1700 MG, ONCE EVERY 2 WEEKS, INTRAVEOUS; 1700 MG (ONCE EVERY 2 WEEKS) INTRAVENOUS
     Route: 042
     Dates: start: 20090112, end: 20090224
  5. AVASTIN [Suspect]
     Indication: RECTAL CANCER
     Dosage: 300 MG, ONCE EVERY 2 WEEKS, INTRAVENOUS; 300 MG (ONCE EVERY 2 WEEKS) INTRAVENOUS
     Route: 042
     Dates: start: 20090112, end: 20090223
  6. AVASTIN [Suspect]
     Indication: RECTAL CANCER
     Dosage: 300 MG, ONCE EVERY 2 WEEKS, INTRAVENOUS; 300 MG (ONCE EVERY 2 WEEKS) INTRAVENOUS
     Route: 042
     Dates: start: 20090112, end: 20090223

REACTIONS (10)
  - AORTIC ANEURYSM RUPTURE [None]
  - DIARRHOEA [None]
  - DYSPEPSIA [None]
  - FALL [None]
  - MUCOUS MEMBRANE DISORDER [None]
  - NAUSEA [None]
  - PROTEINURIA [None]
  - PULSE ABSENT [None]
  - RESPIRATORY ARREST [None]
  - UNRESPONSIVE TO STIMULI [None]
